FAERS Safety Report 24698163 (Version 1)
Quarter: 2024Q4

REPORT INFORMATION
  Report Type: Spontaneous
  Country: US (occurrence: US)
  Receive Date: 20241204
  Receipt Date: 20241204
  Transmission Date: 20250115
  Serious: Yes (Hospitalization)
  Sender: FERRING
  Company Number: US-FERRINGPH-2024FE06699

PATIENT

DRUGS (2)
  1. REBYOTA [Suspect]
     Active Substance: DONOR HUMAN STOOL
     Indication: Clostridium difficile colitis
     Dosage: 150 ML, ONCE/SINGLE
     Route: 054
     Dates: start: 20241011, end: 20241011
  2. REBYOTA [Suspect]
     Active Substance: DONOR HUMAN STOOL
     Indication: Bacterial infection

REACTIONS (2)
  - Clostridium difficile infection [Unknown]
  - Product use in unapproved indication [Recovered/Resolved]

NARRATIVE: CASE EVENT DATE: 20241001
